FAERS Safety Report 21916199 (Version 2)
Quarter: 2023Q1

REPORT INFORMATION
  Report Type: Spontaneous
  Country: US (occurrence: US)
  Receive Date: 20230126
  Receipt Date: 20230220
  Transmission Date: 20230417
  Serious: Yes (Hospitalization)
  Sender: FDA-Public Use
  Company Number: US-TEVA-2023-US-2847706

PATIENT
  Age: 57 Year
  Sex: Male

DRUGS (3)
  1. LORAZEPAM [Suspect]
     Active Substance: LORAZEPAM
     Indication: Catatonia
     Dosage: 6 MILLIGRAM DAILY; ONCE DAILY
     Route: 065
  2. LURASIDONE [Concomitant]
     Active Substance: LURASIDONE
     Indication: Bipolar disorder
     Dosage: 40 MILLIGRAM DAILY; ONCE DAILY
     Route: 065
  3. LURASIDONE [Concomitant]
     Active Substance: LURASIDONE
     Dosage: 60 MILLIGRAM DAILY; ONCE DAILY
     Route: 065

REACTIONS (1)
  - Bradycardia [Unknown]
